FAERS Safety Report 24703755 (Version 1)
Quarter: 2024Q4

REPORT INFORMATION
  Report Type: Spontaneous
  Country: US (occurrence: US)
  Receive Date: 20241206
  Receipt Date: 20241206
  Transmission Date: 20250114
  Serious: No
  Sender: AUROBINDO
  Company Number: US-AUROBINDO-AUR-APL-2024-033581

PATIENT
  Age: 90 Year
  Sex: Female

DRUGS (1)
  1. MIRTAZAPINE [Suspect]
     Active Substance: MIRTAZAPINE
     Indication: Increased appetite
     Dosage: UNK
     Route: 065
     Dates: start: 192008

REACTIONS (3)
  - Weight increased [Unknown]
  - Withdrawal syndrome [Unknown]
  - Off label use [Unknown]
